FAERS Safety Report 12723418 (Version 1)
Quarter: 2016Q3

REPORT INFORMATION
  Report Type: Spontaneous
  Country: US (occurrence: US)
  Receive Date: 20160908
  Receipt Date: 20160908
  Transmission Date: 20161109
  Serious: No
  Sender: FDA-Public Use
  Company Number: US-BAYER-2016-174742

PATIENT
  Age: 87 Year
  Sex: Female

DRUGS (5)
  1. LISINOPRIL. [Concomitant]
     Active Substance: LISINOPRIL
     Indication: BLOOD PRESSURE MANAGEMENT
  2. TRAMADOL. [Concomitant]
     Active Substance: TRAMADOL
  3. ALEVE PM [Suspect]
     Active Substance: DIPHENHYDRAMINE HYDROCHLORIDE\NAPROXEN SODIUM
     Indication: SLEEP DISORDER
     Dosage: 1 DF, UNK
     Route: 048
  4. TRAMADOL. [Concomitant]
     Active Substance: TRAMADOL
  5. TEMAZEPAM. [Concomitant]
     Active Substance: TEMAZEPAM

REACTIONS (2)
  - Abnormal dreams [Not Recovered/Not Resolved]
  - Product use issue [None]
